FAERS Safety Report 22033764 (Version 8)
Quarter: 2025Q3

REPORT INFORMATION
  Report Type: Report from Study
  Country: JP (occurrence: JP)
  Receive Date: 20230224
  Receipt Date: 20250924
  Transmission Date: 20251021
  Serious: Yes (Hospitalization, Other)
  Sender: BAXTER
  Company Number: JP-BAXTER-2023BAX013687

PATIENT
  Age: 28 Year
  Sex: Male
  Weight: 61 kg

DRUGS (22)
  1. CYCLOPHOSPHAMIDE [Suspect]
     Active Substance: CYCLOPHOSPHAMIDE
     Indication: Product used for unknown indication
     Dosage: 40 MG/KG, QD
     Route: 065
     Dates: start: 20221005, end: 20221005
  2. RINDERON VG [Suspect]
     Active Substance: BETAMETHASONE VALERATE\GENTAMICIN SULFATE
     Indication: Seborrhoeic dermatitis
     Route: 065
     Dates: start: 20230307
  3. PREDONINE [Suspect]
     Active Substance: PREDNISOLONE
     Indication: Prophylaxis against transplant rejection
     Dosage: 20 MG, QD
     Route: 048
     Dates: start: 20240729
  4. PREDONINE [Suspect]
     Active Substance: PREDNISOLONE
     Dosage: 20 MG, QD
     Route: 048
     Dates: start: 20240822
  5. PREDONINE [Suspect]
     Active Substance: PREDNISOLONE
     Dosage: 15 MG, QD
     Route: 048
     Dates: start: 20241118
  6. PREDONINE [Suspect]
     Active Substance: PREDNISOLONE
     Dosage: 5 MG, QD (TAPERING)
     Route: 048
  7. RABEPRAZOLE SODIUM [Concomitant]
     Active Substance: RABEPRAZOLE SODIUM
     Indication: Gastritis prophylaxis
     Dosage: 10 MG, QD
     Route: 048
     Dates: start: 20221103
  8. ASPIRIN [Concomitant]
     Active Substance: ASPIRIN
     Indication: Leukocytosis
     Dosage: 100 MG, QD
     Route: 048
     Dates: start: 20221013
  9. TACROLIMUS [Concomitant]
     Active Substance: TACROLIMUS
     Indication: Liver transplant rejection
     Dosage: 5 MG, QD
     Route: 048
     Dates: start: 20230210
  10. TACROLIMUS [Concomitant]
     Active Substance: TACROLIMUS
     Route: 048
     Dates: start: 20230724
  11. TACROLIMUS [Concomitant]
     Active Substance: TACROLIMUS
     Route: 048
     Dates: start: 20231030
  12. TACROLIMUS [Concomitant]
     Active Substance: TACROLIMUS
     Dosage: 0.5 MG, QD (FK REDUCTION BASED ON BLOOD CONCENTRATION (LESS THAN 1 NG/ML))
     Route: 048
     Dates: start: 20230219
  13. TACROLIMUS [Concomitant]
     Active Substance: TACROLIMUS
     Dosage: 3 MG, QD
     Route: 048
     Dates: start: 20240729
  14. URSODIOL [Concomitant]
     Active Substance: URSODIOL
     Indication: Bile duct stenosis
     Dosage: 100 MG, BID
     Route: 048
     Dates: start: 20230321
  15. HEPARIN SODIUM [Concomitant]
     Active Substance: HEPARIN SODIUM
     Indication: Seborrhoeic dermatitis
     Route: 065
     Dates: start: 20230306
  16. LOCOID [Concomitant]
     Active Substance: HYDROCORTISONE BUTYRATE
     Indication: Seborrhoeic dermatitis
     Route: 065
     Dates: start: 20230307
  17. PIPERACILLIN SODIUM\TAZOBACTAM SODIUM [Concomitant]
     Active Substance: PIPERACILLIN SODIUM\TAZOBACTAM SODIUM
     Indication: Product used for unknown indication
     Route: 065
  18. VONOPRAZAN FUMARATE [Concomitant]
     Active Substance: VONOPRAZAN FUMARATE
     Indication: Gastritis prophylaxis
     Dosage: 10 MG, QD
     Route: 048
     Dates: start: 20240729
  19. BEZAFIBRATE [Concomitant]
     Active Substance: BEZAFIBRATE
     Indication: Hepatic steatosis
     Dosage: 200 MG, BID
     Route: 048
     Dates: start: 20240415
  20. BEZAFIBRATE [Concomitant]
     Active Substance: BEZAFIBRATE
     Dosage: 200 MG, BID
     Route: 048
     Dates: start: 20240902
  21. CORTICOSTEROID NOS [Concomitant]
     Active Substance: CORTICOSTEROID NOS
     Indication: Product used for unknown indication
     Route: 065
     Dates: start: 20221104
  22. Antimetabolites [Concomitant]
     Indication: Product used for unknown indication
     Route: 065
     Dates: start: 20221113

REACTIONS (3)
  - Cholangitis [Recovered/Resolved]
  - Transplant rejection [Recovered/Resolved]
  - COVID-19 [Not Recovered/Not Resolved]

NARRATIVE: CASE EVENT DATE: 20230215
